FAERS Safety Report 7649176-3 (Version None)
Quarter: 2011Q3

REPORT INFORMATION
  Report Type: 
  Country: None (occurrence: None)
  Receive Date: 20110720
  Receipt Date: 20110714
  Transmission Date: 20111222
  Serious: Yes (Hospitalization)
  Sender: FDA-Public Use
  Company Number: 2011029184

PATIENT
  Age: 70 Year
  Sex: Female
  Weight: 47.6277 kg

DRUGS (21)
  1. XOPENEX [Concomitant]
  2. PREDNISONE [Concomitant]
  3. ADVAIR DISKUS 100/50 [Concomitant]
  4. PLAVIX [Concomitant]
  5. BUPROPION HYDROCHLORIDE [Concomitant]
  6. OMEPRAZOLE [Concomitant]
  7. EVISTA [Concomitant]
  8. COMBIVENT [Concomitant]
  9. SIMVASTATIN [Concomitant]
  10. LEVAQUIN [Concomitant]
  11. ZEMAIRA [Suspect]
     Indication: EMPHYSEMA
     Dosage: SEE IMAGE
     Route: 042
     Dates: start: 20060204
  12. ZEMAIRA [Suspect]
     Indication: ALPHA-1 ANTI-TRYPSIN DEFICIENCY
     Dosage: SEE IMAGE
     Route: 042
     Dates: start: 20060204
  13. ZEMAIRA [Suspect]
     Indication: EMPHYSEMA
     Dosage: SEE IMAGE
     Route: 042
     Dates: start: 20110620
  14. ZEMAIRA [Suspect]
     Indication: ALPHA-1 ANTI-TRYPSIN DEFICIENCY
     Dosage: SEE IMAGE
     Route: 042
     Dates: start: 20110620
  15. FLONASE [Concomitant]
  16. ASPIRIN [Concomitant]
  17. HEPARIN [Concomitant]
  18. VITAMIN D [Concomitant]
  19. CALCIUM (CALCIUM) [Concomitant]
  20. OXYGEN (OXYGEN) [Concomitant]
  21. SODIUM CHLORIDE 0.9% [Concomitant]

REACTIONS (1)
  - MYOCARDIAL INFARCTION [None]
